FAERS Safety Report 5230201-4 (Version None)
Quarter: 2007Q1

REPORT INFORMATION
  Report Type: 
  Country: None (occurrence: None)
  Receive Date: 20070206
  Receipt Date: 20060929
  Transmission Date: 20070707
  Serious: No
  Sender: FDA-Public Use
  Company Number: US-GLAXOSMITHKLINE-A0621936A

PATIENT
  Age: 59 Year
  Sex: Female

DRUGS (2)
  1. PAXIL CR [Suspect]
     Indication: DEPRESSION
     Dosage: 37.5MG PER DAY
     Route: 048
  2. BLOOD PRESSURE MEDICATION [Concomitant]

REACTIONS (3)
  - DRUG INEFFECTIVE [None]
  - FLUSHING [None]
  - NERVOUSNESS [None]
